FAERS Safety Report 16651667 (Version 5)
Quarter: 2019Q4

REPORT INFORMATION
  Report Type: Report from Study
  Country: US (occurrence: US)
  Receive Date: 20190731
  Receipt Date: 20191002
  Transmission Date: 20200122
  Serious: Yes (Other)
  Sender: FDA-Public Use
  Company Number: US-TESAROUBC-2019-TSO02403-US

PATIENT
  Age: 82 Year
  Sex: Female
  Weight: 51.25 kg

DRUGS (1)
  1. NIRAPARIB [Suspect]
     Active Substance: NIRAPARIB
     Indication: OVARIAN CANCER
     Dosage: 100 MG, QD PM WITHOUT FOOD
     Route: 065
     Dates: start: 20190628, end: 201909

REACTIONS (11)
  - Neuropathy peripheral [Unknown]
  - Disease progression [Unknown]
  - Unevaluable event [Unknown]
  - Vision blurred [Not Recovered/Not Resolved]
  - Fatigue [Not Recovered/Not Resolved]
  - Skin discolouration [Not Recovered/Not Resolved]
  - Dry skin [Not Recovered/Not Resolved]
  - Skin exfoliation [Not Recovered/Not Resolved]
  - Bone decalcification [Not Recovered/Not Resolved]
  - Underdose [Unknown]
  - Contusion [Not Recovered/Not Resolved]

NARRATIVE: CASE EVENT DATE: 20190628
